FAERS Safety Report 20475934 (Version 1)
Quarter: 2022Q1

REPORT INFORMATION
  Report Type: Spontaneous
  Country: JP (occurrence: JP)
  Receive Date: 20220215
  Receipt Date: 20220215
  Transmission Date: 20220423
  Serious: Yes (Other)
  Sender: FDA-Public Use
  Company Number: JP-AMGEN-JPNSP2022023447

PATIENT

DRUGS (10)
  1. BLINATUMOMAB [Suspect]
     Active Substance: BLINATUMOMAB
     Indication: Philadelphia positive acute lymphocytic leukaemia
     Dosage: UNK
     Route: 065
     Dates: start: 201111
  2. DASATINIB [Concomitant]
     Active Substance: DASATINIB
  3. PREDNISOLONE [Concomitant]
     Active Substance: PREDNISOLONE
  4. INOTUZUMAB OZOGAMICIN [Concomitant]
     Active Substance: INOTUZUMAB OZOGAMICIN
  5. CYCLOPHOSPHAMIDE [Concomitant]
     Active Substance: CYCLOPHOSPHAMIDE
  6. VINCRISTINE [Concomitant]
     Active Substance: VINCRISTINE
  7. DOXORUBICIN [Concomitant]
     Active Substance: DOXORUBICIN
  8. DEXAMETHASONE [Concomitant]
     Active Substance: DEXAMETHASONE
  9. PONATINIB [Concomitant]
     Active Substance: PONATINIB
     Dosage: 15 MILLIGRAM
  10. PONATINIB [Concomitant]
     Active Substance: PONATINIB
     Dosage: 30 MILLIGRAM

REACTIONS (4)
  - Philadelphia positive acute lymphocytic leukaemia [Unknown]
  - Bone marrow failure [Unknown]
  - Graft versus host disease in gastrointestinal tract [Recovering/Resolving]
  - Gene mutation [Unknown]

NARRATIVE: CASE EVENT DATE: 20110101
